FAERS Safety Report 4656773-6 (Version None)
Quarter: 2005Q2

REPORT INFORMATION
  Report Type: 
  Country: None (occurrence: None)
  Receive Date: 20050506
  Receipt Date: 20050425
  Transmission Date: 20051028
  Serious: No
  Sender: FDA-Public Use
  Company Number: 2005AC00656

PATIENT
  Age: 68 Year
  Sex: Female

DRUGS (7)
  1. PROPOFOL [Suspect]
     Indication: ANAESTHESIA
  2. PROPOFOL [Suspect]
     Indication: SEDATION
  3. ALFENTANIL [Concomitant]
  4. ISOFLURANE [Concomitant]
  5. PANCURONIUM [Concomitant]
  6. SODIUM NITROPRUSSIDE [Concomitant]
  7. NITROGLYCERIN   A.L. [Concomitant]

REACTIONS (9)
  - BRAIN STEM AUDITORY EVOKED RESPONSE ABNORMAL [None]
  - CARDIAC ARREST [None]
  - CARDIOVASCULAR DISORDER [None]
  - ELECTROCARDIOGRAM ST SEGMENT ABNORMAL [None]
  - ELECTROENCEPHALOGRAM ABNORMAL [None]
  - HYPERTENSION [None]
  - METABOLIC ACIDOSIS [None]
  - POST PROCEDURAL COMPLICATION [None]
  - VENTRICULAR FIBRILLATION [None]
